FAERS Safety Report 21997219 (Version 1)
Quarter: 2023Q1

REPORT INFORMATION
  Report Type: Spontaneous
  Country: US (occurrence: US)
  Receive Date: 20230216
  Receipt Date: 20230216
  Transmission Date: 20230418
  Serious: Yes (Other)
  Sender: FDA-Public Use
  Company Number: US-AMGEN-USASP2023026901

PATIENT
  Sex: Male

DRUGS (10)
  1. OTEZLA [Suspect]
     Active Substance: APREMILAST
     Indication: Psoriasis
     Dosage: 30 MILLIGRAM, BID
     Route: 048
  2. PRILOSEC [Concomitant]
     Active Substance: OMEPRAZOLE MAGNESIUM
     Dosage: UNK
  3. TUMS [Concomitant]
     Active Substance: CALCIUM CARBONATE
     Dosage: UNK
  4. OMEGA 3 [Concomitant]
     Active Substance: CAPSAICIN
     Dosage: UNK
  5. PEPCID [Concomitant]
     Active Substance: FAMOTIDINE
     Dosage: UNK
  6. METFORMIN HYDROCHLORIDE [Concomitant]
     Active Substance: METFORMIN HYDROCHLORIDE
     Dosage: UNK
  7. ROSUVASTATIN CALCIUM [Concomitant]
     Active Substance: ROSUVASTATIN CALCIUM
     Dosage: UNK
  8. OLMESARTAN MEDOXOMIL [Concomitant]
     Active Substance: OLMESARTAN MEDOXOMIL
     Dosage: UNK
  9. DESONIDE [Concomitant]
     Active Substance: DESONIDE
     Dosage: UNK
  10. BETAMETHASONE VALERATE [Concomitant]
     Active Substance: BETAMETHASONE VALERATE

REACTIONS (6)
  - Diabetes mellitus [Unknown]
  - Headache [Recovered/Resolved]
  - Diarrhoea [Recovered/Resolved]
  - Blood cholesterol increased [Unknown]
  - Blood pressure increased [Unknown]
  - Tinea cruris [Unknown]
